FAERS Safety Report 9198020 (Version 2)
Quarter: 2013Q2

REPORT INFORMATION
  Report Type: Spontaneous
  Country: US (occurrence: US)
  Receive Date: 20130328
  Receipt Date: 20130404
  Transmission Date: 20140414
  Serious: Yes (Hospitalization)
  Sender: FDA-Public Use
  Company Number: US-B.I. PHARMACEUTICALS,INC./RIDGEFIELD-2013-BI-08005BP

PATIENT
  Age: 71 Year
  Sex: Male
  Weight: 92.5 kg

DRUGS (5)
  1. PRADAXA [Suspect]
     Indication: ATRIAL FIBRILLATION
     Dosage: 300 MG
     Dates: start: 20111106, end: 20111109
  2. SIMVASTATIN [Concomitant]
  3. PROPRANOLOL [Concomitant]
     Dosage: 160 MG
  4. ENALAPRIL [Concomitant]
     Dosage: 10 MG
  5. ASPIRIN [Concomitant]
     Dosage: 81 MG

REACTIONS (1)
  - Upper gastrointestinal haemorrhage [Unknown]
